FAERS Safety Report 6278550-5 (Version None)
Quarter: 2009Q3

REPORT INFORMATION
  Report Type: 
  Country: None (occurrence: None)
  Receive Date: 20090722
  Receipt Date: 20080813
  Transmission Date: 20100115
  Serious: No
  Sender: FDA-Public Use
  Company Number: US-BAUSCH-2008BL003652

PATIENT
  Age: 83 Year
  Sex: Female

DRUGS (6)
  1. OPCON-A [Suspect]
     Indication: OCULAR HYPERAEMIA
     Route: 047
     Dates: start: 20080808, end: 20080808
  2. THYROID TAB [Concomitant]
  3. BENICAR /USA/ [Concomitant]
  4. OSCAL [Concomitant]
  5. ACTONEL /USA/ [Concomitant]
  6. CENTRUM SILVER [Concomitant]

REACTIONS (3)
  - CONDITION AGGRAVATED [None]
  - OCULAR HYPERAEMIA [None]
  - VISION BLURRED [None]
